FAERS Safety Report 7645061-1 (Version None)
Quarter: 2011Q3

REPORT INFORMATION
  Report Type: 
  Country: None (occurrence: None)
  Receive Date: 20110725
  Receipt Date: 20110713
  Transmission Date: 20111222
  Serious: Yes (Hospitalization)
  Sender: FDA-Public Use
  Company Number: 1000021444

PATIENT
  Age: 73 Year
  Sex: Female

DRUGS (5)
  1. ROFLUMILAST (ROFLUMILAST) (TABLETS) [Suspect]
     Indication: CHRONIC OBSTRUCTIVE PULMONARY DISEASE
     Dosage: ORAL
     Route: 048
     Dates: start: 20110201
  2. HYDROCHLOROTHIAZIDE [Concomitant]
  3. SPIRIVA [Concomitant]
  4. LISINOPRIL [Concomitant]
  5. NUX VOMICA (NUX VOMICA HOMACCORD) [Suspect]
     Dates: start: 20110517

REACTIONS (6)
  - DYSPNOEA [None]
  - GENERAL PHYSICAL HEALTH DETERIORATION [None]
  - OEDEMA MOUTH [None]
  - TYPE I HYPERSENSITIVITY [None]
  - PHARYNGEAL OEDEMA [None]
  - SWOLLEN TONGUE [None]
